FAERS Safety Report 9415720 (Version 1)
Quarter: 2013Q3

REPORT INFORMATION
  Report Type: Spontaneous
  Country: US (occurrence: US)
  Receive Date: 20130723
  Receipt Date: 20130723
  Transmission Date: 20140515
  Serious: No
  Sender: FDA-Public Use
  Company Number: US-009507513-1307USA011455

PATIENT
  Sex: Female

DRUGS (2)
  1. NASONEX [Suspect]
     Indication: RHINITIS
     Dosage: 50 MICROGRAM/TWO SPRAYS EACH NOSTRIL TWICE DAILY
     Route: 045
     Dates: start: 201306, end: 201306
  2. BENADRYL [Concomitant]

REACTIONS (2)
  - Urticaria [Recovered/Resolved]
  - Pruritus [Recovered/Resolved]
